FAERS Safety Report 12539813 (Version 2)
Quarter: 2016Q4

REPORT INFORMATION
  Report Type: Report from Study
  Country: DE (occurrence: DE)
  Receive Date: 20160708
  Receipt Date: 20161018
  Transmission Date: 20170207
  Serious: Yes (Other)
  Sender: FDA-Public Use
  Company Number: DE-CELGENEUS-DEU-2016066252

PATIENT
  Age: 84 Year
  Sex: Male
  Weight: 66.5 kg

DRUGS (10)
  1. CC-4047 [Suspect]
     Active Substance: POMALIDOMIDE
     Indication: PLASMA CELL MYELOMA
     Route: 048
     Dates: start: 20120731
  2. DEXAMETHASONE. [Suspect]
     Active Substance: DEXAMETHASONE
     Dosage: 100 MILLIGRAM
     Route: 065
     Dates: start: 20160602
  3. ACETYLSALICYLIC ACID [Concomitant]
     Active Substance: ASPIRIN
     Indication: THROMBOSIS PROPHYLAXIS
     Dosage: 6 MILLIGRAM
     Route: 048
     Dates: start: 20120925
  4. REVLIMID [Suspect]
     Active Substance: LENALIDOMIDE
     Indication: PLASMA CELL MYELOMA
     Route: 048
     Dates: start: 20120326, end: 20120708
  5. DEXAMETHASONE. [Suspect]
     Active Substance: DEXAMETHASONE
     Route: 048
     Dates: start: 20120326, end: 20120708
  6. MACROGOL [Concomitant]
     Active Substance: POLYETHYLENE GLYCOLS
     Indication: CONSTIPATION
     Route: 048
     Dates: start: 20150414
  7. CC-4047 [Suspect]
     Active Substance: POMALIDOMIDE
     Route: 048
     Dates: start: 20160602
  8. PREDNISOLONE. [Concomitant]
     Active Substance: PREDNISOLONE
     Indication: GINGIVITIS
     Route: 061
     Dates: start: 20160601
  9. IBANDRONIC ACID [Concomitant]
     Active Substance: IBANDRONIC ACID
     Indication: PROPHYLAXIS
     Route: 041
     Dates: start: 20140622
  10. DEXAMETHASONE. [Suspect]
     Active Substance: DEXAMETHASONE
     Indication: PLASMA CELL MYELOMA
     Route: 065
     Dates: start: 20120731

REACTIONS (1)
  - Malignant neoplasm of unknown primary site [Not Recovered/Not Resolved]

NARRATIVE: CASE EVENT DATE: 20160602
